FAERS Safety Report 23068430 (Version 1)
Quarter: 2023Q4

REPORT INFORMATION
  Report Type: Spontaneous
  Country: US (occurrence: None)
  Receive Date: 20231013
  Receipt Date: 20231013
  Transmission Date: 20240110
  Serious: Yes (Disabling)
  Sender: FDA-Public Use
  Company Number: None

PATIENT
  Age: 61 Year
  Sex: Male
  Weight: 90 kg

DRUGS (5)
  1. DOXYCYCLINE HYCLATE [Suspect]
     Active Substance: DOXYCYCLINE HYCLATE
     Indication: Skin infection
     Dosage: OTHER QUANTITY : 28 CAPSULE(S);?FREQUENCY : TWICE A DAY;?
     Route: 048
     Dates: start: 20231010, end: 20231011
  2. PRAVASTATIN [Concomitant]
     Active Substance: PRAVASTATIN
  3. TADALAFIL [Concomitant]
     Active Substance: TADALAFIL
  4. HERBALS\SAW PALMETTO [Concomitant]
     Active Substance: HERBALS\SAW PALMETTO
  5. COENZYME Q10 [Concomitant]
     Active Substance: DIETARY SUPPLEMENT\UBIDECARENONE

REACTIONS (4)
  - Dizziness [None]
  - Heart rate increased [None]
  - Fatigue [None]
  - Pain in jaw [None]

NARRATIVE: CASE EVENT DATE: 20231010
